FAERS Safety Report 21947347 (Version 1)
Quarter: 2023Q1

REPORT INFORMATION
  Report Type: Spontaneous
  Country: RU (occurrence: RU)
  Receive Date: 20230202
  Receipt Date: 20230202
  Transmission Date: 20230417
  Serious: No
  Sender: FDA-Public Use
  Company Number: RU-009507513-2301RUS008698

PATIENT
  Sex: Female

DRUGS (1)
  1. LAGEVRIO [Suspect]
     Active Substance: MOLNUPIRAVIR
     Route: 048

REACTIONS (2)
  - Product use issue [Unknown]
  - Incorrect dose administered [Unknown]
